FAERS Safety Report 7334889-3 (Version None)
Quarter: 2011Q1

REPORT INFORMATION
  Report Type: 
  Country: None (occurrence: None)
  Receive Date: 20110307
  Receipt Date: 20110301
  Transmission Date: 20110831
  Serious: Yes (Death, Life-Threatening, Hospitalization, Other)
  Sender: FDA-Public Use
  Company Number: BE-ROCHE-594247

PATIENT
  Sex: Female

DRUGS (1)
  1. XELODA [Suspect]
     Dosage: 2000 MG IN MORNING AND 2500 MG IN EVENING
     Route: 048
     Dates: start: 20081011, end: 20081024

REACTIONS (6)
  - LEUKOPENIA [None]
  - CEREBRAL HAEMORRHAGE [None]
  - NEUTROPENIC SEPSIS [None]
  - DIARRHOEA [None]
  - MUCOSAL INFLAMMATION [None]
  - PLATELET COUNT DECREASED [None]
